FAERS Safety Report 7711527-9 (Version None)
Quarter: 2011Q3

REPORT INFORMATION
  Report Type: 
  Country: None (occurrence: None)
  Receive Date: 20110826
  Receipt Date: 20110818
  Transmission Date: 20111222
  Serious: Yes (Hospitalization)
  Sender: FDA-Public Use
  Company Number: US-JNJFOC-20110809479

PATIENT
  Sex: Female
  Weight: 77.11 kg

DRUGS (1)
  1. DURAGESIC-100 [Suspect]
     Indication: PAIN
     Route: 062
     Dates: start: 20110101

REACTIONS (5)
  - GAIT DISTURBANCE [None]
  - CELLULITIS [None]
  - DRUG INEFFECTIVE [None]
  - PAIN [None]
  - ABASIA [None]
